FAERS Safety Report 9474025 (Version 2)
Quarter: 2013Q3

REPORT INFORMATION
  Report Type: Spontaneous
  Country: GB (occurrence: GB)
  Receive Date: 20130823
  Receipt Date: 20130823
  Transmission Date: 20140515
  Serious: Yes (Death, Hospitalization, Other)
  Sender: FDA-Public Use
  Company Number: GB-009507513-1307GBR000952

PATIENT
  Age: 52 Year
  Sex: Female

DRUGS (3)
  1. DEXAMETHASONE TABLETS BP 2.0MG [Suspect]
     Indication: PROPHYLAXIS
     Dosage: 16 MG, DAILY
     Route: 048
     Dates: start: 20130603
  2. DEXAMETHASONE TABLETS BP 2.0MG [Suspect]
     Dosage: 32 MG DAILY
     Route: 048
     Dates: start: 20130620
  3. LANSOPRAZOLE [Suspect]
     Indication: DYSPEPSIA

REACTIONS (11)
  - Large intestine perforation [Recovered/Resolved]
  - Confusional state [Unknown]
  - Cushing^s syndrome [Unknown]
  - Death [Fatal]
  - Delirium [Unknown]
  - Dysstasia [Unknown]
  - Gait disturbance [Unknown]
  - Incoherent [Unknown]
  - Dyspepsia [Unknown]
  - Malaise [Unknown]
  - Aphagia [Unknown]
